FAERS Safety Report 15867509 (Version 1)
Quarter: 2019Q1

REPORT INFORMATION
  Report Type: Spontaneous
  Country: CZ (occurrence: CZ)
  Receive Date: 20190125
  Receipt Date: 20190125
  Transmission Date: 20190417
  Serious: Yes (Other)
  Sender: FDA-Public Use
  Company Number: CZ-ROCHE-2106113

PATIENT
  Age: 82 Year
  Sex: Male

DRUGS (5)
  1. GAZYVARO [Suspect]
     Active Substance: OBINUTUZUMAB
     Indication: CHRONIC LYMPHOCYTIC LEUKAEMIA
     Route: 042
  2. GAZYVARO [Suspect]
     Active Substance: OBINUTUZUMAB
     Route: 042
  3. DEXAMETHASONE. [Concomitant]
     Active Substance: DEXAMETHASONE
     Indication: PREMEDICATION
     Route: 042
  4. PARACETAMOL [Concomitant]
     Active Substance: ACETAMINOPHEN
     Indication: PREMEDICATION
     Route: 048
  5. BISULEPIN [Concomitant]
     Active Substance: BISULEPIN
     Indication: PREMEDICATION
     Route: 042

REACTIONS (6)
  - Infusion related reaction [Unknown]
  - Epididymitis [Unknown]
  - Pyrexia [Recovered/Resolved]
  - C-reactive protein increased [Recovering/Resolving]
  - Urinary tract infection [Unknown]
  - Nausea [Unknown]
